FAERS Safety Report 11453269 (Version 1)
Quarter: 2015Q3

REPORT INFORMATION
  Report Type: Spontaneous
  Country: US (occurrence: US)
  Receive Date: 20150903
  Receipt Date: 20150903
  Transmission Date: 20151125
  Serious: No
  Sender: FDA-Public Use
  Company Number: US-PFIZER INC-2015282319

PATIENT
  Age: 72 Year
  Sex: Male

DRUGS (1)
  1. ADVIL [Suspect]
     Active Substance: IBUPROFEN
     Indication: NEURALGIA
     Dosage: 2 DF, 2X/DAY (EACH ALMOST EVERY 12 HOURS FOR THE LAST 12 DAYS)

REACTIONS (2)
  - Peripheral swelling [Unknown]
  - Product use issue [Unknown]
